FAERS Safety Report 23549327 (Version 2)
Quarter: 2024Q1

REPORT INFORMATION
  Report Type: Spontaneous
  Country: US (occurrence: US)
  Receive Date: 20240221
  Receipt Date: 20240307
  Transmission Date: 20240409
  Serious: Yes (Hospitalization)
  Sender: FDA-Public Use
  Company Number: US-TEVA-VS-3158670

PATIENT
  Age: 8 Decade
  Sex: Male

DRUGS (4)
  1. DONEPEZIL [Suspect]
     Active Substance: DONEPEZIL
     Indication: Dementia Alzheimer^s type
     Route: 065
  2. QUETIAPINE [Concomitant]
     Active Substance: QUETIAPINE
     Indication: Product used for unknown indication
     Route: 065
  3. MEMANTINE [Concomitant]
     Active Substance: MEMANTINE
     Indication: Product used for unknown indication
     Route: 065
  4. ATROPINE [Suspect]
     Active Substance: ATROPINE\ATROPINE SULFATE
     Indication: Bradycardia
     Route: 042

REACTIONS (7)
  - Bifascicular block [Recovered/Resolved]
  - Foaming at mouth [Recovered/Resolved]
  - Trifascicular block [Recovered/Resolved]
  - Tonic clonic movements [Recovered/Resolved]
  - Therapy non-responder [Unknown]
  - Atrioventricular block complete [Recovered/Resolved]
  - Rhythm idioventricular [Recovered/Resolved]
